FAERS Safety Report 9004695 (Version 2)
Quarter: 2013Q1

REPORT INFORMATION
  Report Type: Spontaneous
  Country: US (occurrence: US)
  Receive Date: 20130109
  Receipt Date: 20130315
  Transmission Date: 20140127
  Serious: Yes (Hospitalization)
  Sender: FDA-Public Use
  Company Number: US-ELI_LILLY_AND_COMPANY-US201301000529

PATIENT
  Age: 71 Year
  Sex: Female
  Weight: 87.53 kg

DRUGS (9)
  1. FORTEO [Suspect]
     Dosage: 20 UG, QD
     Route: 058
     Dates: start: 20121203
  2. XANAX [Concomitant]
     Dosage: 0.5 PRN
  3. NORCO [Concomitant]
     Dosage: 10/325 PRN
  4. CALCIUM W/VITAMIN D                /00188401/ [Concomitant]
     Dosage: UNK, QD
  5. GABAPENTIN [Concomitant]
     Dosage: 400 MG, QID
  6. MULTIVITAMIN [Concomitant]
     Dosage: UNK, QD
  7. LUTEIN [Concomitant]
     Dosage: AT HS
  8. OMEGA 3 [Concomitant]
     Dosage: AT HS
  9. DILAUDID [Concomitant]
     Dosage: 4MG QID PRN

REACTIONS (2)
  - Pulmonary embolism [Recovered/Resolved]
  - Pulmonary infarction [Recovered/Resolved]
